FAERS Safety Report 9689000 (Version 3)
Quarter: 2014Q1

REPORT INFORMATION
  Report Type: Spontaneous
  Country: ES (occurrence: ES)
  Receive Date: 20131114
  Receipt Date: 20140131
  Transmission Date: 20141002
  Serious: Yes (Other)
  Sender: FDA-Public Use
  Company Number: ES-CELGENEUS-144-20785-13106125

PATIENT
  Age: 73 Year
  Sex: Male

DRUGS (19)
  1. THALIDOMIDE [Suspect]
     Indication: HEREDITARY HAEMORRHAGIC TELANGIECTASIA
     Dosage: VARIABLE 50 TO 100
     Route: 048
     Dates: start: 201205, end: 201305
  2. LORMETAZEPAM [Concomitant]
     Indication: PRODUCT USED FOR UNKNOWN INDICATION
     Dosage: 2 MILLIGRAM
     Route: 048
     Dates: start: 20080328
  3. BLOOD TRANSFUSION [Concomitant]
     Indication: PRODUCT USED FOR UNKNOWN INDICATION
     Route: 041
  4. SINTROM [Concomitant]
     Indication: PRODUCT USED FOR UNKNOWN INDICATION
     Route: 065
  5. PANTOPRAZOLE [Concomitant]
     Indication: GASTROINTESTINAL HAEMORRHAGE
     Dosage: 40 MILLIGRAM
     Route: 048
     Dates: start: 20110930
  6. FERRO-GRADUMET [Concomitant]
     Indication: ANAEMIA
     Dosage: 105 MILLIGRAM
     Route: 048
     Dates: start: 20120127, end: 20131126
  7. FERRO-GRADUMET [Concomitant]
     Indication: HAEMORRHAGE
  8. SIMVASTATIN [Concomitant]
     Indication: HYPERCHOLESTEROLAEMIA
     Dosage: 20 MILLIGRAM
     Route: 048
     Dates: start: 20120127
  9. METFORMIN [Concomitant]
     Indication: TYPE 2 DIABETES MELLITUS
     Route: 048
     Dates: start: 20120301
  10. FOLIC ACID [Concomitant]
     Indication: ANAEMIA
     Dosage: 5 MILLIGRAM
     Route: 048
     Dates: start: 20111122, end: 20130606
  11. FOLIC ACID [Concomitant]
     Indication: HAEMORRHAGE
  12. FUROSEMIDE [Concomitant]
     Indication: HYPERTENSION
     Dosage: 40 MILLIGRAM
     Route: 048
     Dates: start: 20120301, end: 20130706
  13. FUROSEMIDE [Concomitant]
     Indication: HAEMORRHAGE
  14. ALDACTONE [Concomitant]
     Indication: HYPERTENSION
     Dosage: 25 MILLIGRAM
     Route: 048
     Dates: start: 20121017
  15. ALDACTONE [Concomitant]
     Indication: HAEMORRHAGE
  16. RAMIPRIL [Concomitant]
     Indication: HYPERTENSION
     Dosage: 2.5 MILLIGRAM
     Route: 048
     Dates: start: 20121017, end: 20131015
  17. RAMIPRIL [Concomitant]
     Indication: HAEMORRHAGE
  18. EPO [Concomitant]
     Indication: ANAEMIA
     Route: 065
     Dates: start: 20131113
  19. EPO [Concomitant]
     Indication: HAEMORRHAGE

REACTIONS (1)
  - Myelodysplastic syndrome [Unknown]
